FAERS Safety Report 7279781-8 (Version None)
Quarter: 2011Q1

REPORT INFORMATION
  Report Type: 
  Country: None (occurrence: None)
  Receive Date: 20110208
  Receipt Date: 20110201
  Transmission Date: 20110831
  Serious: Yes (Death, Other)
  Sender: FDA-Public Use
  Company Number: US-CELGENEUS-163-21880-10091144

PATIENT
  Sex: Male
  Weight: 88 kg

DRUGS (27)
  1. AZACITIDINE [Suspect]
     Route: 051
     Dates: start: 20100802, end: 20100806
  2. VALACYCLOVIR [Concomitant]
     Route: 065
  3. ACETAMINOPHEN [Concomitant]
     Route: 065
  4. ACETAMINOPHEN [Concomitant]
     Route: 065
  5. DIPHENHYDRAMINE [Concomitant]
     Route: 065
  6. LOPERAMIDE [Concomitant]
     Route: 065
  7. CEFEPIME [Concomitant]
     Route: 065
  8. REVLIMID [Suspect]
     Route: 048
     Dates: start: 20100802, end: 20100813
  9. OXYCODONE HCL [Concomitant]
     Route: 065
  10. POLYETHYLENE GLYCOL [Concomitant]
     Route: 065
  11. PREGABALIN [Concomitant]
     Route: 065
  12. URSODIOL [Concomitant]
     Route: 065
  13. PROCHLORPERAZINE [Concomitant]
     Route: 065
  14. AMOXICILLIN AND CLAVULANATE POTASSIUM [Concomitant]
     Route: 065
  15. MAALOX/DIPHENHYDRAMINE/VISCOUS [Concomitant]
     Route: 065
  16. POLYVINYL [Concomitant]
     Route: 065
  17. SALINE [Concomitant]
     Route: 045
  18. LORATADINE [Concomitant]
     Route: 065
  19. BACITRACIN/POLYMIXIN B [Concomitant]
     Route: 061
  20. NORMAL SALINE [Concomitant]
     Route: 065
  21. DOCUSATE SODIUM [Concomitant]
     Route: 048
  22. MINERAL OIL/PETROLATUM WHITE [Concomitant]
     Route: 065
  23. PRAMOXINE-ZINC OXIDE [Concomitant]
     Route: 054
  24. FLUCONAZOLE [Concomitant]
     Route: 065
  25. CAMPHOR/MENTHOL [Concomitant]
     Route: 065
  26. ONDANSETRON [Concomitant]
     Route: 065
  27. CIPROFLOXACIN [Concomitant]
     Route: 065

REACTIONS (2)
  - SOMNOLENCE [None]
  - ACUTE MYELOID LEUKAEMIA [None]
